FAERS Safety Report 13039494 (Version 1)
Quarter: 2016Q4

REPORT INFORMATION
  Report Type: Spontaneous
  Country: US (occurrence: US)
  Receive Date: 20161219
  Receipt Date: 20161219
  Transmission Date: 20170207
  Serious: Yes (Hospitalization, Other)
  Sender: FDA-Public Use
  Company Number: US-STANDARD HOMEOPATHIC COMPANY-1060970

PATIENT
  Age: 74 Year
  Sex: Male

DRUGS (1)
  1. HYLAND^S LEG CRAMPS TABLETS PM [Suspect]
     Active Substance: HOMEOPATHICS
     Indication: PAIN
     Route: 048
     Dates: start: 20161121, end: 20161128

REACTIONS (2)
  - Diverticulitis [None]
  - Intracardiac thrombus [None]

NARRATIVE: CASE EVENT DATE: 20161128
